FAERS Safety Report 25371170 (Version 1)
Quarter: 2025Q2

REPORT INFORMATION
  Report Type: Spontaneous
  Country: KR (occurrence: KR)
  Receive Date: 20250529
  Receipt Date: 20250529
  Transmission Date: 20250716
  Serious: Yes (Life-Threatening, Hospitalization, Other)
  Sender: GRANULES PHARMACEUTICALS INC
  Company Number: KR-GRANULES-KR-2025GRALIT00265

PATIENT
  Age: 46 Year
  Sex: Female
  Weight: 80 kg

DRUGS (4)
  1. FLUOXETINE [Suspect]
     Active Substance: FLUOXETINE HYDROCHLORIDE
     Indication: Depression
     Route: 065
  2. PHENTERMINE [Suspect]
     Active Substance: PHENTERMINE
     Indication: Obesity
     Route: 065
  3. TOPIRAMATE [Suspect]
     Active Substance: TOPIRAMATE
     Indication: Obesity
     Route: 065
  4. CHLORTHALIDONE [Concomitant]
     Active Substance: CHLORTHALIDONE
     Indication: Product used for unknown indication
     Route: 065

REACTIONS (23)
  - Acute respiratory distress syndrome [Recovering/Resolving]
  - Renal failure [Recovering/Resolving]
  - Multiple organ dysfunction syndrome [Recovering/Resolving]
  - Serotonin syndrome [Recovering/Resolving]
  - Pulmonary embolism [Recovering/Resolving]
  - Akinesia [Recovering/Resolving]
  - Acute kidney injury [Recovering/Resolving]
  - Renal impairment [Recovering/Resolving]
  - Rhabdomyolysis [Recovering/Resolving]
  - Hypokalaemia [Recovering/Resolving]
  - Stress cardiomyopathy [Recovering/Resolving]
  - Pyrexia [Recovering/Resolving]
  - Dysarthria [Recovering/Resolving]
  - Dysstasia [Recovering/Resolving]
  - Confusional state [Recovering/Resolving]
  - Agitation [Recovering/Resolving]
  - Muscular weakness [Recovering/Resolving]
  - Clonus [Recovering/Resolving]
  - Sinus tachycardia [Recovering/Resolving]
  - Mobility decreased [Recovering/Resolving]
  - Left ventricular dysfunction [Recovering/Resolving]
  - Right ventricular dysfunction [Recovering/Resolving]
  - Drug interaction [Unknown]
